FAERS Safety Report 7355760-7 (Version None)
Quarter: 2011Q1

REPORT INFORMATION
  Report Type: 
  Country: None (occurrence: None)
  Receive Date: 20110316
  Receipt Date: 20110307
  Transmission Date: 20110831
  Serious: Yes (Other)
  Sender: FDA-Public Use
  Company Number: US-TEVA-270172USA

PATIENT
  Age: 50 Year
  Sex: Male

DRUGS (5)
  1. VINCRISTINE [Suspect]
     Indication: T-CELL TYPE ACUTE LEUKAEMIA
  2. DEXAMETHASONE SODIUM PHOSPHATE [Suspect]
     Indication: T-CELL TYPE ACUTE LEUKAEMIA
  3. RITUXIMAB [Suspect]
  4. CYCLOPHOSPHAMIDE [Suspect]
     Indication: T-CELL TYPE ACUTE LEUKAEMIA
  5. DOXORUBICIN [Suspect]
     Indication: T-CELL TYPE ACUTE LEUKAEMIA

REACTIONS (1)
  - CYTOMEGALOVIRUS CHORIORETINITIS [None]
